FAERS Safety Report 15277294 (Version 1)
Quarter: 2018Q4

REPORT INFORMATION
  Report Type: Other
  Country: HR (occurrence: HR)
  Receive Date: 20180814
  Receipt Date: 20180814
  Transmission Date: 20190204
  Serious: Yes (Other)
  Sender: FDA-Public Use
  Company Number: HR-NALPROPION PHARMACEUTICALS INC-2053724

PATIENT
  Age: 56 Year
  Sex: Female
  Weight: 85 kg

DRUGS (4)
  1. CONTRAVE [Suspect]
     Active Substance: BUPROPION HYDROCHLORIDE\NALTREXONE HYDROCHLORIDE
     Indication: OVERWEIGHT
     Route: 048
     Dates: start: 20180122, end: 20180126
  2. EUTIROX - LEVOTHYROXINE SODIUM [Concomitant]
     Route: 048
     Dates: start: 2016
  3. TRITACE - RAMIPRIL [Concomitant]
     Route: 048
     Dates: start: 2017
  4. GLUFORMIN - METFORMIN HYDROCHLORIDE [Concomitant]
     Route: 048
     Dates: start: 2016

REACTIONS (2)
  - Chills [Recovering/Resolving]
  - Blood pressure increased [Recovered/Resolved]

NARRATIVE: CASE EVENT DATE: 20180122
